FAERS Safety Report 19854980 (Version 1)
Quarter: 2021Q3

REPORT INFORMATION
  Report Type: Spontaneous
  Country: CA (occurrence: CA)
  Receive Date: 20210920
  Receipt Date: 20210920
  Transmission Date: 20211014
  Serious: Yes (Other)
  Sender: FDA-Public Use
  Company Number: CA-TEVA-2021-CA-1954653

PATIENT
  Age: 16 Year
  Sex: Female

DRUGS (3)
  1. PANTOPRAZOLE [Concomitant]
     Active Substance: PANTOPRAZOLE
  2. SERTRALINE [Concomitant]
     Active Substance: SERTRALINE HYDROCHLORIDE
  3. ACT ONDANSETRON [Suspect]
     Active Substance: ONDANSETRON
     Indication: NAUSEA

REACTIONS (6)
  - Cognitive disorder [Recovered/Resolved]
  - Vomiting [Recovered/Resolved]
  - Labelled drug-drug interaction issue [Recovered/Resolved]
  - Movement disorder [Recovered/Resolved]
  - Malaise [Recovered/Resolved]
  - Nausea [Recovered/Resolved]
